FAERS Safety Report 12440769 (Version 1)
Quarter: 2016Q2

REPORT INFORMATION
  Report Type: Spontaneous
  Country: US (occurrence: US)
  Receive Date: 20160606
  Receipt Date: 20160606
  Transmission Date: 20160815
  Serious: Yes (Other)
  Sender: FDA-Public Use
  Company Number: US-ROCHE-1768238

PATIENT
  Sex: Female

DRUGS (3)
  1. BETADINE [Suspect]
     Active Substance: POVIDONE-IODINE
     Indication: INFECTION PROPHYLAXIS
     Route: 061
     Dates: start: 20160506
  2. AVASTIN [Suspect]
     Active Substance: BEVACIZUMAB
     Indication: NEOVASCULAR AGE-RELATED MACULAR DEGENERATION
     Route: 031
     Dates: start: 20160212, end: 20160427
  3. EYLEA [Suspect]
     Active Substance: AFLIBERCEPT
     Indication: NEOVASCULAR AGE-RELATED MACULAR DEGENERATION
     Dosage: BOTH EYES
     Route: 031
     Dates: start: 20160506

REACTIONS (8)
  - Eye pain [Recovered/Resolved]
  - Vitreous floaters [Unknown]
  - Drug ineffective [Unknown]
  - Visual impairment [Unknown]
  - Vision blurred [Unknown]
  - Photopsia [Unknown]
  - Eye irritation [Unknown]
  - Eye discharge [Unknown]

NARRATIVE: CASE EVENT DATE: 201605
